FAERS Safety Report 21439127 (Version 1)
Quarter: 2022Q4

REPORT INFORMATION
  Report Type: Spontaneous
  Country: US (occurrence: None)
  Receive Date: 20221007
  Receipt Date: 20221007
  Transmission Date: 20230112
  Serious: Yes (Hospitalization, Disabling)
  Sender: FDA-Public Use
  Company Number: None

PATIENT
  Age: 54 Year
  Sex: Male

DRUGS (5)
  1. TACROLIMUS [Suspect]
     Active Substance: TACROLIMUS
     Indication: Renal transplant
     Dosage: OTHER QUANTITY : 5MG AM 4MG PM;?FREQUENCY : TWICE A DAY;?
     Route: 048
     Dates: start: 202201
  2. SIROLIMUS [Suspect]
     Active Substance: SIROLIMUS
     Dosage: FREQUENCY : DAILY;?
     Route: 048
     Dates: start: 202101, end: 20221002
  3. LOSARTAN [Concomitant]
     Active Substance: LOSARTAN
  4. GLIPIZIDE ER [Concomitant]
     Active Substance: GLIPIZIDE
  5. PREDNISONE [Concomitant]
     Active Substance: PREDNISONE

REACTIONS (1)
  - Deep vein thrombosis [None]

NARRATIVE: CASE EVENT DATE: 20221001
